FAERS Safety Report 23135454 (Version 1)
Quarter: 2023Q4

REPORT INFORMATION
  Report Type: Spontaneous
  Country: US (occurrence: None)
  Receive Date: 20231101
  Receipt Date: 20231101
  Transmission Date: 20240110
  Serious: No
  Sender: FDA-Public Use
  Company Number: None

PATIENT

DRUGS (2)
  1. ELIQUIS [Suspect]
     Active Substance: APIXABAN
  2. XARELTO [Suspect]
     Active Substance: RIVAROXABAN

REACTIONS (5)
  - Product prescribing error [None]
  - Wrong product administered [None]
  - Incorrect dose administered [None]
  - Product prescribing error [None]
  - Product selection error [None]
